FAERS Safety Report 23516333 (Version 1)
Quarter: 2024Q1

REPORT INFORMATION
  Report Type: Spontaneous
  Country: GB (occurrence: GB)
  Receive Date: 20240213
  Receipt Date: 20240213
  Transmission Date: 20240410
  Serious: Yes (Other)
  Sender: FDA-Public Use
  Company Number: None

PATIENT

DRUGS (5)
  1. PREGABALIN [Suspect]
     Active Substance: PREGABALIN
     Indication: Complex regional pain syndrome
     Dosage: 75 MG THREE TIMES A DAY
     Route: 065
  2. ABATACEPT [Concomitant]
     Active Substance: ABATACEPT
     Indication: Juvenile idiopathic arthritis
     Route: 065
  3. AMITRIPTYLINE [Concomitant]
     Active Substance: AMITRIPTYLINE
     Indication: Complex regional pain syndrome
     Route: 065
  4. CLONIDINE [Concomitant]
     Active Substance: CLONIDINE
     Indication: Complex regional pain syndrome
     Route: 065
  5. LEVETIRACETAM [Concomitant]
     Active Substance: LEVETIRACETAM
     Indication: Seizure
     Route: 065

REACTIONS (6)
  - Tonic convulsion [Not Recovered/Not Resolved]
  - Cold sweat [Not Recovered/Not Resolved]
  - Joint lock [Unknown]
  - Hallucination [Not Recovered/Not Resolved]
  - Insomnia [Unknown]
  - Arthralgia [Unknown]

NARRATIVE: CASE EVENT DATE: 20240105
